FAERS Safety Report 7565050-5 (Version None)
Quarter: 2011Q2

REPORT INFORMATION
  Report Type: 
  Country: None (occurrence: None)
  Receive Date: 20110622
  Receipt Date: 20110425
  Transmission Date: 20111010
  Serious: Yes (Other)
  Sender: FDA-Public Use
  Company Number: US-MYLANLABS-2011S1008074

PATIENT
  Age: 35 Year
  Sex: Male

DRUGS (6)
  1. CIPROFLOXACIN HCL [Concomitant]
  2. DEPAKOTE [Concomitant]
  3. CLOZAPINE [Suspect]
     Indication: SCHIZOAFFECTIVE DISORDER
     Route: 048
     Dates: end: 20110418
  4. CLOZAPINE [Suspect]
     Route: 048
     Dates: start: 20110418, end: 20110418
  5. HALDOL [Concomitant]
  6. COGENTIN [Concomitant]

REACTIONS (1)
  - GRANULOCYTOPENIA [None]
